FAERS Safety Report 25835247 (Version 1)
Quarter: 2025Q3

REPORT INFORMATION
  Report Type: Report from Study
  Country: US (occurrence: US)
  Receive Date: 20250923
  Receipt Date: 20250923
  Transmission Date: 20251021
  Serious: Yes (Death, Other)
  Sender: ACADIA PHARMACEUTICALS
  Company Number: US-ACADIA PHARMACEUTICALS INC.-ACA-2025-PIM-010490

PATIENT
  Age: 75 Year
  Sex: Male

DRUGS (12)
  1. NUPLAZID [Suspect]
     Active Substance: PIMAVANSERIN TARTRATE
     Indication: Delusion
     Dosage: 34 MILLIGRAM, QD
     Route: 048
  2. NUPLAZID [Suspect]
     Active Substance: PIMAVANSERIN TARTRATE
     Indication: Hallucination
  3. NUPLAZID [Suspect]
     Active Substance: PIMAVANSERIN TARTRATE
     Indication: Parkinson^s disease
  4. MIRTAZAPINE [Concomitant]
     Active Substance: MIRTAZAPINE
  5. OMEPRAZOLE [Concomitant]
     Active Substance: OMEPRAZOLE
  6. SILODOSIN [Concomitant]
     Active Substance: SILODOSIN
  7. CLONAZEPAM [Concomitant]
     Active Substance: CLONAZEPAM
  8. OLANZAPINE [Concomitant]
     Active Substance: OLANZAPINE
  9. ESCITALOPRAM [Concomitant]
     Active Substance: ESCITALOPRAM OXALATE
  10. ESCITALOPRAM [Concomitant]
     Active Substance: ESCITALOPRAM OXALATE
  11. FAMOTIDINE [Concomitant]
     Active Substance: FAMOTIDINE
  12. XARELTO [Concomitant]
     Active Substance: RIVAROXABAN

REACTIONS (1)
  - Death [Fatal]

NARRATIVE: CASE EVENT DATE: 20250917
